FAERS Safety Report 14705829 (Version 9)
Quarter: 2018Q3

REPORT INFORMATION
  Report Type: Spontaneous
  Country: CA (occurrence: CA)
  Receive Date: 20180402
  Receipt Date: 20180918
  Transmission Date: 20181010
  Serious: Yes (Other)
  Sender: FDA-Public Use
  Company Number: CA-CELLTRION INC.-2017CA015814

PATIENT

DRUGS (8)
  1. INFLECTRA [Suspect]
     Active Substance: INFLIXIMAB-DYYB
     Indication: COLITIS ULCERATIVE
     Dosage: 500 MG,  2,6 WEEKS, THEN EVERY 8 WEEKS
     Route: 042
     Dates: start: 20170909
  2. INFLECTRA [Suspect]
     Active Substance: INFLIXIMAB-DYYB
     Dosage: 700 MG, CYCLIC (EVERY 8 WEEKS)
     Route: 042
     Dates: start: 20180427
  3. INFLECTRA [Suspect]
     Active Substance: INFLIXIMAB-DYYB
     Dosage: 500 MG, (2,6 WEEKS, THEN EVERY 8 WEEKS)
     Route: 042
     Dates: start: 20171227, end: 20171227
  4. INFLECTRA [Suspect]
     Active Substance: INFLIXIMAB-DYYB
     Dosage: 500 MG (2,6 WEEKS, THEN EVERY 8 WEEKS)
     Route: 042
     Dates: start: 20180221
  5. INFLECTRA [Suspect]
     Active Substance: INFLIXIMAB-DYYB
     Dosage: 700 MG, CYCLIC (EVERY 8 WEEKS)
     Route: 042
     Dates: start: 20180815
  6. PREDNISONE. [Concomitant]
     Active Substance: PREDNISONE
     Dosage: 40 MG, QD
  7. INFLECTRA [Suspect]
     Active Substance: INFLIXIMAB-DYYB
     Dosage: 500 MG, (2,6 WEEKS, THEN EVERY 8 WEEKS)
     Route: 042
     Dates: start: 20171101, end: 20171101
  8. INFLECTRA [Suspect]
     Active Substance: INFLIXIMAB-DYYB
     Dosage: 700 MG, CYCLIC (EVERY 8 WEEKS)
     Route: 042
     Dates: start: 20180620

REACTIONS (10)
  - Pain in extremity [Unknown]
  - Drug level below therapeutic [Not Recovered/Not Resolved]
  - Body temperature fluctuation [Unknown]
  - Back pain [Unknown]
  - Alopecia [Not Recovered/Not Resolved]
  - Arthropathy [Not Recovered/Not Resolved]
  - Respiratory tract infection [Recovered/Resolved]
  - Swelling [Unknown]
  - Candida infection [Not Recovered/Not Resolved]
  - Blood pressure fluctuation [Unknown]

NARRATIVE: CASE EVENT DATE: 20171227
